FAERS Safety Report 18326291 (Version 1)
Quarter: 2020Q3

REPORT INFORMATION
  Report Type: Spontaneous
  Country: BR (occurrence: BR)
  Receive Date: 20200929
  Receipt Date: 20200929
  Transmission Date: 20201103
  Serious: Yes (Other)
  Sender: FDA-Public Use
  Company Number: BR-BAYER-2020-017360

PATIENT
  Age: 33 Year
  Sex: Female
  Weight: 60 kg

DRUGS (1)
  1. MIRENA [Suspect]
     Active Substance: LEVONORGESTREL
     Indication: CONTRACEPTION
     Dosage: 20 MCG/24HR, CONT
     Route: 015
     Dates: start: 20160714, end: 20200530

REACTIONS (9)
  - Premature rupture of membranes [None]
  - Device dislocation [Recovered/Resolved]
  - Pregnancy with contraceptive device [Not Recovered/Not Resolved]
  - Uterine leiomyoma [None]
  - Abortion threatened [None]
  - Premature delivery [None]
  - Drug ineffective [None]
  - Retained placenta or membranes [Recovered/Resolved]
  - Uterine haematoma [Not Recovered/Not Resolved]

NARRATIVE: CASE EVENT DATE: 20191031
